FAERS Safety Report 10268744 (Version 2)
Quarter: 2014Q2

REPORT INFORMATION
  Report Type: Spontaneous
  Country: US (occurrence: US)
  Receive Date: 20140630
  Receipt Date: 20140630
  Transmission Date: 20141212
  Serious: Yes (Death, Hospitalization)
  Sender: FDA-Public Use
  Company Number: US-GLAXOSMITHKLINE-A0886506A

PATIENT
  Age: 79 Year
  Sex: Female
  Weight: 4.5 kg

DRUGS (7)
  1. AVANDIA [Suspect]
     Indication: TYPE 2 DIABETES MELLITUS
     Dosage: 8MG PER DAY
     Route: 048
     Dates: start: 20000329, end: 20060511
  2. MAVIK [Concomitant]
  3. LIPITOR [Concomitant]
  4. AMARYL [Concomitant]
  5. LOZOL [Concomitant]
  6. SYNTHROID [Concomitant]
  7. ALLOPURINOL [Concomitant]

REACTIONS (4)
  - Myocardial infarction [Fatal]
  - Myocardial ischaemia [Fatal]
  - Cardiac failure congestive [Unknown]
  - Stent placement [Unknown]
